FAERS Safety Report 9885172 (Version 1)
Quarter: 2014Q1

REPORT INFORMATION
  Report Type: Spontaneous
  Country: US (occurrence: None)
  Receive Date: 20140205
  Receipt Date: 20140205
  Transmission Date: 20141002
  Serious: Yes (Death, Hospitalization)
  Sender: FDA-Public Use
  Company Number: IMP_07053_2014

PATIENT
  Age: 21 Year
  Sex: Male

DRUGS (2)
  1. PROMETHAZINE [Suspect]
     Indication: PRODUCT USED FOR UNKNOWN INDICATION
     Dosage: 2 DOSES ADMINSTERED, EACH DOSE GIVEN APPROXIMATELY 4 HOURS APART
     Route: 048
     Dates: start: 2012, end: 2012
  2. COCAINE [Suspect]
     Dosage: RESPIRATORY (INHALATION)

REACTIONS (16)
  - Viral infection [None]
  - Nausea [None]
  - Vomiting [None]
  - Agitation [None]
  - Unresponsive to stimuli [None]
  - Sinus tachycardia [None]
  - Bundle branch block right [None]
  - Bradyarrhythmia [None]
  - Hyperkalaemia [None]
  - Anuria [None]
  - Hepatic steatosis [None]
  - Brain oedema [None]
  - Bronchopneumonia [None]
  - Reye^s syndrome [None]
  - Gastroenteritis viral [None]
  - Acute hepatic failure [None]
